FAERS Safety Report 21062018 (Version 1)
Quarter: 2022Q3

REPORT INFORMATION
  Report Type: Spontaneous
  Country: IR (occurrence: IR)
  Receive Date: 20220710
  Receipt Date: 20220710
  Transmission Date: 20221027
  Serious: Yes (Other)
  Sender: FDA-Public Use
  Company Number: IR-MLMSERVICE-20220627-3637927-1

PATIENT
  Age: 24 Month
  Sex: Male

DRUGS (6)
  1. FAMOTIDINE [Suspect]
     Active Substance: FAMOTIDINE
     Indication: Foetal exposure during pregnancy
     Dosage: 20 MG, BID
     Route: 064
  2. ONDANSETRON [Suspect]
     Active Substance: ONDANSETRON
     Indication: Foetal exposure during pregnancy
     Route: 064
  3. CABERGOLINE [Suspect]
     Active Substance: CABERGOLINE
     Indication: Foetal exposure during pregnancy
     Dosage: TWICE A WEEK
     Route: 064
  4. IODINE [Concomitant]
     Active Substance: IODINE
     Route: 064
  5. IRON [Concomitant]
     Active Substance: IRON
     Route: 064
  6. FOLIC ACID [Concomitant]
     Active Substance: FOLIC ACID
     Route: 064

REACTIONS (1)
  - Syndactyly [Unknown]
